FAERS Safety Report 10179524 (Version 1)
Quarter: 2014Q2

REPORT INFORMATION
  Report Type: Spontaneous
  Country: US (occurrence: US)
  Receive Date: 20140519
  Receipt Date: 20140519
  Transmission Date: 20141212
  Serious: No
  Sender: FDA-Public Use
  Company Number: US-SHIRE-US201402292

PATIENT
  Sex: Male

DRUGS (1)
  1. VYVANSE [Suspect]
     Indication: PRODUCT USED FOR UNKNOWN INDICATION
     Dosage: UNK (OPENDED 30 MG CAPSULES ONTO PLATE AND WAS SNIFFING THEM) , UNKNOWN
     Route: 045
     Dates: start: 201405, end: 201405

REACTIONS (4)
  - Drug diversion [Recovered/Resolved]
  - Intentional product misuse [Recovered/Resolved]
  - No adverse event [Recovered/Resolved]
  - Product quality issue [Recovered/Resolved]
